FAERS Safety Report 18798439 (Version 1)
Quarter: 2021Q1

REPORT INFORMATION
  Report Type: Other
  Country: US (occurrence: US)
  Receive Date: 20210128
  Receipt Date: 20210128
  Transmission Date: 20210419
  Serious: Yes (Death)
  Sender: FDA-Public Use
  Company Number: US-ROCHE-2745317

PATIENT
  Sex: Male

DRUGS (1)
  1. OCREVUS [Suspect]
     Active Substance: OCRELIZUMAB
     Indication: PRIMARY PROGRESSIVE MULTIPLE SCLEROSIS
     Dosage: PRESCRIBED WITH INFUSE 300 MG DAY 1, 300 MG DAY 15 THEN 600 MG EVERY 6 MONTHS?DATE OF TREATMENT: 21/
     Route: 042
     Dates: start: 20181129

REACTIONS (2)
  - Pulmonary embolism [Fatal]
  - COVID-19 [Fatal]
